FAERS Safety Report 16112206 (Version 1)
Quarter: 2019Q1

REPORT INFORMATION
  Report Type: Spontaneous
  Country: JP (occurrence: JP)
  Receive Date: 20190325
  Receipt Date: 20190325
  Transmission Date: 20190418
  Serious: Yes (Hospitalization)
  Sender: FDA-Public Use
  Company Number: JP-ELI_LILLY_AND_COMPANY-JP201903008674

PATIENT
  Age: 85 Year
  Sex: Male

DRUGS (3)
  1. SEIBULE [Concomitant]
     Active Substance: MIGLITOL
  2. TRULICITY [Suspect]
     Active Substance: DULAGLUTIDE
     Indication: TYPE 2 DIABETES MELLITUS
     Dosage: UNK
     Route: 058
  3. METFORMIN [Concomitant]
     Active Substance: METFORMIN HYDROCHLORIDE
     Dosage: 1000 MG, DAILY

REACTIONS (2)
  - Diabetes mellitus inadequate control [Recovering/Resolving]
  - Femur fracture [Recovered/Resolved]
